FAERS Safety Report 9885874 (Version 1)
Quarter: 2014Q1

REPORT INFORMATION
  Report Type: Spontaneous
  Country: NL (occurrence: None)
  Receive Date: 20140206
  Receipt Date: 20140206
  Transmission Date: 20141002
  Serious: Yes (Other)
  Sender: FDA-Public Use
  Company Number: AUR-APL-2014-01141

PATIENT
  Age: 41 Year
  Sex: Male
  Weight: 79 kg

DRUGS (4)
  1. PANTOPRAZOLE [Suspect]
     Indication: PRODUCT USED FOR UNKNOWN INDICATION
     Dosage: ONE TIME PER DAY 3 PIECE (S) ANTI-PSYCHOITICS 1XPDAG PANTO ES MULTIPLE TIMES) ORAL
     Route: 048
     Dates: start: 20050402
  2. ORAP [Suspect]
     Indication: PRODUCT USED FOR UNKNOWN INDICATION
     Dosage: ONE TIME PER DAY 3 PIECE (S) ANTI-PSYCHOITICS 1XPDAG PANTO ES MULTIPLE TIMES) ORAL?
     Route: 048
     Dates: start: 20050402
  3. ESOMEPRAZOLE [Suspect]
     Indication: PRODUCT USED FOR UNKNOWN INDICATION
     Dosage: ONE TIME PER DAY 3 PIECE (S) ANTI-PSYCHOITICS 1XPDAG PANTO ES MULTIPLE TIMES) ORAL?
     Route: 048
     Dates: start: 20050402
  4. ABILIFY [Suspect]
     Indication: PRODUCT USED FOR UNKNOWN INDICATION
     Dosage: ONE TIME PER DAY 3 PIECE (S) ANTI-PSYCHOITICS 1XPDAG PANTO ES MULTIPLE TIMES) ORAL?
     Route: 048
     Dates: start: 20050402

REACTIONS (2)
  - Back pain [None]
  - Renal impairment [None]
